FAERS Safety Report 17898468 (Version 1)
Quarter: 2020Q2

REPORT INFORMATION
  Report Type: Spontaneous
  Country: US (occurrence: US)
  Receive Date: 20200615
  Receipt Date: 20200615
  Transmission Date: 20200714
  Serious: Yes (Death)
  Sender: FDA-Public Use
  Company Number: US-JNJFOC-20200618198

PATIENT
  Sex: Male

DRUGS (12)
  1. ZYTIGA [Suspect]
     Active Substance: ABIRATERONE ACETATE
     Indication: PRODUCT USED FOR UNKNOWN INDICATION
     Route: 048
  2. MORPHINE SULFATE. [Concomitant]
     Active Substance: MORPHINE SULFATE
  3. TAXOTERE [Concomitant]
     Active Substance: DOCETAXEL
  4. ASPRIN [Concomitant]
     Active Substance: ASPIRIN
  5. HYDROCODONE [Concomitant]
     Active Substance: HYDROCODONE
  6. PREDNISONE. [Concomitant]
     Active Substance: PREDNISONE
  7. SIMVASTATIN. [Concomitant]
     Active Substance: SIMVASTATIN
  8. TYLENOL [Concomitant]
     Active Substance: ACETAMINOPHEN
  9. XGEVA [Concomitant]
     Active Substance: DENOSUMAB
  10. CYANOCOBALAMIN. [Concomitant]
     Active Substance: CYANOCOBALAMIN
  11. COLECALCIFEROL [Concomitant]
     Active Substance: CHOLECALCIFEROL
  12. ELIGARD [Concomitant]
     Active Substance: LEUPROLIDE ACETATE

REACTIONS (1)
  - Death [Fatal]
